FAERS Safety Report 23891514 (Version 2)
Quarter: 2024Q2

REPORT INFORMATION
  Report Type: Report from Study
  Country: US (occurrence: US)
  Receive Date: 20240523
  Receipt Date: 20240628
  Transmission Date: 20240715
  Serious: Yes (Other)
  Sender: FDA-Public Use
  Company Number: US-TAKEDA-2024TUS050783

PATIENT
  Sex: Female

DRUGS (2)
  1. HUMAN IMMUNOGLOBULIN G [Suspect]
     Active Substance: HUMAN IMMUNOGLOBULIN G
     Indication: Primary immunodeficiency syndrome
     Dosage: UNK
     Route: 058
  2. HUMAN IMMUNOGLOBULIN G [Suspect]
     Active Substance: HUMAN IMMUNOGLOBULIN G
     Indication: Hypogammaglobulinaemia

REACTIONS (8)
  - Systemic lupus erythematosus [Unknown]
  - Injection site oedema [Unknown]
  - Injection site discharge [Unknown]
  - Herpes zoster [Unknown]
  - Peripheral swelling [Unknown]
  - Skin ulcer [Unknown]
  - Lymphadenopathy [Unknown]
  - Fatigue [Unknown]
